FAERS Safety Report 9564203 (Version 1)
Quarter: 2013Q3

REPORT INFORMATION
  Report Type: Spontaneous
  Country: US (occurrence: US)
  Receive Date: 20130930
  Receipt Date: 20130930
  Transmission Date: 20140515
  Serious: Yes (Death)
  Sender: FDA-Public Use
  Company Number: 2013SP006861

PATIENT
  Age: 70 Year
  Sex: Male

DRUGS (1)
  1. VANCOMYCIN [Suspect]
     Indication: PRODUCT USED FOR UNKNOWN INDICATION
     Route: 042

REACTIONS (2)
  - Acute generalised exanthematous pustulosis [Fatal]
  - Multi-organ failure [Fatal]
